FAERS Safety Report 8018720-9 (Version None)
Quarter: 2012Q1

REPORT INFORMATION
  Report Type: 
  Country: None (occurrence: None)
  Receive Date: 20120103
  Receipt Date: 20120103
  Transmission Date: 20120608
  Serious: Yes (Life-Threatening, Hospitalization)
  Sender: FDA-Public Use
  Company Number: None

PATIENT
  Age: 42 Year
  Sex: Female
  Weight: 91.172 kg

DRUGS (1)
  1. KARIVA [Suspect]
     Indication: PELVIC PAIN
     Dosage: 1 PILL PER DAY
     Dates: start: 20110123, end: 20110314

REACTIONS (1)
  - PULMONARY EMBOLISM [None]
